FAERS Safety Report 9201333 (Version 1)
Quarter: 2013Q2

REPORT INFORMATION
  Report Type: Spontaneous
  Country: BR (occurrence: BR)
  Receive Date: 20130401
  Receipt Date: 20130401
  Transmission Date: 20140414
  Serious: Yes (Other)
  Sender: FDA-Public Use
  Company Number: BR-JNJFOC-20111002515

PATIENT
  Age: 54 Year
  Sex: Female
  Weight: 95 kg

DRUGS (11)
  1. REMICADE [Suspect]
     Indication: PSORIASIS
     Route: 042
     Dates: start: 20130214
  2. REMICADE [Suspect]
     Indication: PSORIASIS
     Route: 042
     Dates: start: 20080623, end: 2012
  3. REMICADE [Suspect]
     Indication: PSORIASIS
     Route: 042
     Dates: start: 20121116
  4. REMICADE [Suspect]
     Indication: PSORIATIC ARTHROPATHY
     Route: 042
     Dates: start: 20121116
  5. REMICADE [Suspect]
     Indication: PSORIATIC ARTHROPATHY
     Route: 042
     Dates: start: 20130214
  6. REMICADE [Suspect]
     Indication: PSORIATIC ARTHROPATHY
     Route: 042
     Dates: start: 20080623, end: 2012
  7. METHOTREXATE [Concomitant]
     Indication: PSORIASIS
     Dosage: 4 TABLETS IN MORNING AND 4 TABLETS IN EVENING ON THURSDAYS
     Route: 065
  8. TYLENOL [Concomitant]
     Indication: PAIN
     Route: 065
  9. METFORMIN HYDROCHLORIDE [Concomitant]
     Indication: DIABETES MELLITUS
     Route: 065
  10. LOSARTAN [Concomitant]
     Indication: HYPERTENSION
     Route: 065
  11. ACECLOFENAC [Concomitant]
     Indication: PAIN
     Route: 065

REACTIONS (7)
  - Pneumonia [Recovered/Resolved]
  - Wound [Unknown]
  - Malaise [Recovered/Resolved]
  - Palpitations [Recovered/Resolved]
  - Stress [Not Recovered/Not Resolved]
  - Urinary tract infection [Unknown]
  - Psoriatic arthropathy [Recovered/Resolved]
